FAERS Safety Report 11467251 (Version 5)
Quarter: 2015Q4

REPORT INFORMATION
  Report Type: Spontaneous
  Country: CA (occurrence: CA)
  Receive Date: 20150908
  Receipt Date: 20151224
  Transmission Date: 20160304
  Serious: Yes (Other)
  Sender: FDA-Public Use
  Company Number: CA-ROCHE-1630022

PATIENT
  Age: 59 Year
  Sex: Female

DRUGS (11)
  1. XOLAIR [Suspect]
     Active Substance: OMALIZUMAB
     Route: 058
     Dates: start: 20151216
  2. LUCENTIS [Concomitant]
     Active Substance: RANIBIZUMAB
     Route: 065
     Dates: start: 20150327
  3. XOLAIR [Suspect]
     Active Substance: OMALIZUMAB
     Indication: ASTHMA
     Route: 058
     Dates: start: 20100204
  4. BIAXIN [Suspect]
     Active Substance: CLARITHROMYCIN
     Indication: BRONCHITIS
  5. SYMBICORT [Concomitant]
     Active Substance: BUDESONIDE\FORMOTEROL FUMARATE DIHYDRATE
  6. ADVAIR HFA [Concomitant]
     Active Substance: FLUTICASONE PROPIONATE\SALMETEROL XINAFOATE
     Route: 065
  7. XOLAIR [Suspect]
     Active Substance: OMALIZUMAB
     Route: 058
     Dates: start: 20150422
  8. BIAXIN [Suspect]
     Active Substance: CLARITHROMYCIN
     Indication: SINUSITIS
     Dosage: FOR 10 DAYS
     Route: 048
     Dates: start: 20131019
  9. XOLAIR [Suspect]
     Active Substance: OMALIZUMAB
     Route: 058
     Dates: start: 20151118
  10. AVAMYS [Concomitant]
     Active Substance: FLUTICASONE FUROATE
  11. SALBUTAMOL [Concomitant]
     Active Substance: ALBUTEROL

REACTIONS (16)
  - Palpitations [Unknown]
  - Dyspnoea [Unknown]
  - Blood pressure increased [Unknown]
  - Nasal congestion [Unknown]
  - Bronchitis [Unknown]
  - Rhinorrhoea [Recovering/Resolving]
  - Oral herpes [Unknown]
  - Hot flush [Unknown]
  - Pulmonary congestion [Recovering/Resolving]
  - Sleep disorder [Unknown]
  - Productive cough [Recovering/Resolving]
  - Dysphonia [Unknown]
  - Hypersensitivity [Unknown]
  - Sinusitis [Not Recovered/Not Resolved]
  - Nasopharyngitis [Recovering/Resolving]
  - Increased upper airway secretion [Recovering/Resolving]

NARRATIVE: CASE EVENT DATE: 201008
